FAERS Safety Report 5009656-6 (Version None)
Quarter: 2006Q2

REPORT INFORMATION
  Report Type: 
  Country: None (occurrence: None)
  Receive Date: 20060524
  Receipt Date: 20060510
  Transmission Date: 20061013
  Serious: Yes (Other)
  Sender: FDA-Public Use
  Company Number: US-GLAXOSMITHKLINE-B0424495A

PATIENT
  Sex: Male

DRUGS (3)
  1. BUPROPION [Suspect]
     Indication: ANTIDEPRESSANT THERAPY
     Route: 065
  2. VENLAFAXINE HCL [Suspect]
     Indication: ANTIDEPRESSANT THERAPY
     Route: 065
  3. FLUVOXAMINE MALEATE [Concomitant]
     Indication: ANTIDEPRESSANT THERAPY
     Route: 065

REACTIONS (5)
  - DISINHIBITION [None]
  - INTENTIONAL SELF-INJURY [None]
  - LETHARGY [None]
  - SUICIDAL BEHAVIOUR [None]
  - SUICIDE ATTEMPT [None]
